FAERS Safety Report 9915793 (Version 1)
Quarter: 2014Q1

REPORT INFORMATION
  Report Type: Spontaneous
  Country: US (occurrence: None)
  Receive Date: 20140218
  Receipt Date: 20140218
  Transmission Date: 20141002
  Serious: Yes (Other)
  Sender: FDA-Public Use
  Company Number: 2014P1001106

PATIENT
  Age: 6 Year
  Sex: Female

DRUGS (1)
  1. METHYLPREDNISOLONE [Suspect]
     Indication: ACUTE DISSEMINATED ENCEPHALOMYELITIS
     Dosage: 30 MG/KG; QD; IV
     Route: 042

REACTIONS (6)
  - Optic neuritis [None]
  - Drug withdrawal syndrome [None]
  - Headache [None]
  - Eye pain [None]
  - Vision blurred [None]
  - Visual field defect [None]
